FAERS Safety Report 14025829 (Version 1)
Quarter: 2017Q3

REPORT INFORMATION
  Report Type: Spontaneous
  Country: US (occurrence: US)
  Receive Date: 20170929
  Receipt Date: 20170929
  Transmission Date: 20171128
  Serious: No
  Sender: FDA-Public Use
  Company Number: US-PFIZER INC-2017419455

PATIENT
  Age: 47 Year
  Sex: Female
  Weight: 79.38 kg

DRUGS (1)
  1. EMBEDA [Suspect]
     Active Substance: MORPHINE SULFATE\NALTREXONE HYDROCHLORIDE
     Indication: PERIARTHRITIS
     Dosage: 50MG CAPSULE BY MOUTH TWICE DAILY
     Route: 048
     Dates: start: 2017, end: 20170925

REACTIONS (4)
  - Pain [Not Recovered/Not Resolved]
  - Drug dose omission [Unknown]
  - Drug withdrawal syndrome [Not Recovered/Not Resolved]
  - Product use in unapproved indication [Unknown]

NARRATIVE: CASE EVENT DATE: 20170925
